FAERS Safety Report 5508580-X (Version None)
Quarter: 2007Q4

REPORT INFORMATION
  Report Type: 
  Country: None (occurrence: None)
  Receive Date: 20071031
  Receipt Date: 20070722
  Transmission Date: 20080405
  Serious: No
  Sender: FDA-Public Use
  Company Number: 2007PV033168

PATIENT
  Age: 70 Year
  Sex: Male

DRUGS (12)
  1. SYMLIN [Suspect]
     Indication: TYPE 2 DIABETES MELLITUS
     Dosage: 90 MCG;TID; SC; 60 MCG;TID; SC
     Route: 058
     Dates: start: 20070501, end: 20070501
  2. SYMLIN [Suspect]
     Indication: TYPE 2 DIABETES MELLITUS
     Dosage: 90 MCG;TID; SC; 60 MCG;TID; SC
     Route: 058
     Dates: start: 20070501
  3. METFORMIN HCL [Concomitant]
  4. METFORMIN HCL [Concomitant]
  5. BENAZEPRIL HYDROCHLORIDE [Concomitant]
  6. AMLODIPINE [Concomitant]
  7. COZAAR [Concomitant]
  8. OMEPRAZOLE [Concomitant]
  9. OMEPRAZOLE [Concomitant]
  10. HUMALOG [Concomitant]
  11. UNSPECIFIED EYE DROPS [Concomitant]
  12. UNSPECIFIED 2ND TYPE OF EYE DROPS [Concomitant]

REACTIONS (4)
  - DISORIENTATION [None]
  - DIZZINESS [None]
  - GASTROOESOPHAGEAL REFLUX DISEASE [None]
  - MALAISE [None]
